FAERS Safety Report 4664798-X (Version None)
Quarter: 2005Q2

REPORT INFORMATION
  Report Type: 
  Country: None (occurrence: None)
  Receive Date: 20050516
  Receipt Date: 20050504
  Transmission Date: 20051028
  Serious: Yes (Death, Other)
  Sender: FDA-Public Use
  Company Number: FABR-10700

PATIENT
  Age: 83 Year
  Sex: Male
  Weight: 55 kg

DRUGS (10)
  1. FABRAZYME [Suspect]
     Indication: FABRY'S DISEASE
     Dosage: 55 MG Q2WKS IV
     Route: 042
     Dates: start: 20031203, end: 20040629
  2. FABRAZYME [Suspect]
     Indication: FABRY'S DISEASE
     Dosage: 65 MG Q2WKS IV
     Route: 042
     Dates: start: 20021202, end: 20031119
  3. ZANTAC [Concomitant]
  4. GLICAZIDE [Concomitant]
  5. METFORMIN [Concomitant]
  6. AMIODARONE [Concomitant]
  7. METOPROLOL [Concomitant]
  8. MADOPAR [Concomitant]
  9. CO-AMILOFRUSE [Concomitant]
  10. CAPTOPRIL [Concomitant]

REACTIONS (4)
  - CARDIAC FAILURE CONGESTIVE [None]
  - CONDITION AGGRAVATED [None]
  - MYOCARDITIS [None]
  - RENAL IMPAIRMENT [None]
